FAERS Safety Report 25056775 (Version 1)
Quarter: 2025Q1

REPORT INFORMATION
  Report Type: Spontaneous
  Country: US (occurrence: US)
  Receive Date: 20250310
  Receipt Date: 20250310
  Transmission Date: 20250409
  Serious: No
  Sender: AMGEN
  Company Number: US-AMGEN-USASP2025045535

PATIENT
  Sex: Male

DRUGS (4)
  1. OTEZLA [Suspect]
     Active Substance: APREMILAST
     Indication: Psoriatic arthropathy
     Dosage: 30 MILLIGRAM, BID (TAKE 1 TABLET BY MOUTH TWICE DAILY)
     Route: 048
     Dates: start: 20200403
  2. CIALIS [Concomitant]
     Active Substance: TADALAFIL
  3. CLARITIN [Concomitant]
     Active Substance: LORATADINE
  4. FOLIC ACID [Concomitant]
     Active Substance: FOLIC ACID

REACTIONS (2)
  - Pain [Unknown]
  - Therapy non-responder [Unknown]
